FAERS Safety Report 7337153-1 (Version None)
Quarter: 2011Q1

REPORT INFORMATION
  Report Type: 
  Country: None (occurrence: None)
  Receive Date: 20110308
  Receipt Date: 20110302
  Transmission Date: 20110831
  Serious: Yes (Other)
  Sender: FDA-Public Use
  Company Number: US-PFIZER INC-2010175756

PATIENT
  Sex: Female

DRUGS (1)
  1. CHANTIX [Suspect]
     Indication: SMOKING CESSATION THERAPY
     Dosage: 0.5MG, 1MG, UNK
     Route: 048
     Dates: start: 20070111, end: 20070201

REACTIONS (4)
  - DEPRESSION [None]
  - MENTAL DISORDER [None]
  - ANXIETY [None]
  - SUICIDAL IDEATION [None]
